FAERS Safety Report 7738637-4 (Version None)
Quarter: 2011Q3

REPORT INFORMATION
  Report Type: 
  Country: None (occurrence: None)
  Receive Date: 20110908
  Receipt Date: 20110830
  Transmission Date: 20111222
  Serious: Yes (Hospitalization)
  Sender: FDA-Public Use
  Company Number: US-ASTRAZENECA-2011SE52062

PATIENT
  Sex: Female

DRUGS (3)
  1. FASLODEX [Suspect]
     Dosage: TOTAL DAILY DOSE OF 250 MG
     Route: 030
  2. DOXAL [Concomitant]
     Dosage: 6 CYCLES
  3. FASLODEX [Suspect]
     Dosage: TOTAL DAILY DOSE OF 500 MG
     Route: 030

REACTIONS (1)
  - HEPATIC CIRRHOSIS [None]
